FAERS Safety Report 10460132 (Version 1)
Quarter: 2014Q3

REPORT INFORMATION
  Report Type: Spontaneous
  Country: US (occurrence: US)
  Receive Date: 20140917
  Receipt Date: 20140917
  Transmission Date: 20150326
  Serious: No
  Sender: FDA-Public Use
  Company Number: US-ELI_LILLY_AND_COMPANY-US201408009127

PATIENT
  Age: 67 Year
  Sex: Female

DRUGS (3)
  1. HUMALOG [Suspect]
     Active Substance: INSULIN LISPRO
     Indication: DIABETES MELLITUS
     Dosage: 45 U, BID
     Route: 065
     Dates: start: 1999, end: 20140821
  2. HUMALOG [Suspect]
     Active Substance: INSULIN LISPRO
     Indication: DIABETES MELLITUS
     Dosage: UNK, PRN
     Route: 065
     Dates: start: 1999
  3. HUMALOG [Suspect]
     Active Substance: INSULIN LISPRO
     Indication: DIABETES MELLITUS
     Dosage: 45 U, BID
     Route: 058
     Dates: start: 20140821

REACTIONS (5)
  - Seasonal allergy [Unknown]
  - Drug ineffective [Unknown]
  - Blood glucose increased [Unknown]
  - Intentional product misuse [Unknown]
  - Hypoacusis [Unknown]

NARRATIVE: CASE EVENT DATE: 20140821
